FAERS Safety Report 9738499 (Version 2)
Quarter: 2013Q4

REPORT INFORMATION
  Report Type: Spontaneous
  Country: US (occurrence: US)
  Receive Date: 20131208
  Receipt Date: 20131218
  Transmission Date: 20140711
  Serious: Yes (Death, Other)
  Sender: FDA-Public Use
  Company Number: US-AMGEN-USASP2013085114

PATIENT
  Age: 89 Year
  Sex: Female
  Weight: 74.38 kg

DRUGS (18)
  1. PROLIA [Suspect]
     Indication: OSTEOPOROSIS
     Dosage: 60 MG, Q6MO
     Route: 058
     Dates: start: 20120321
  2. TYLENOL EXTRA STRENGTH [Concomitant]
     Dosage: 325 MG, BID
     Route: 065
     Dates: start: 20130619
  3. TEARS NATURALE                     /01282201/ [Concomitant]
     Dosage: UNK UNK, AS NECESSARY
     Dates: start: 20130619
  4. NATURAL BALANCE TEARS [Concomitant]
     Dosage: UNK UNK, AS NECESSARY
     Dates: start: 20130619
  5. COZAAR [Concomitant]
     Dosage: 25 MG, QD
     Dates: start: 20130619
  6. COUMADINE [Concomitant]
     Dosage: 2 MG, QD
     Dates: start: 20130619
  7. DULCOLAX                           /00064401/ [Concomitant]
     Dosage: 10 MG, QD
     Dates: start: 20130102
  8. CELEXA                             /00582602/ [Concomitant]
     Dosage: 10 MG, QD
     Dates: start: 20121130
  9. MECLIZINE                          /00072801/ [Concomitant]
     Dosage: 12.5 MG, Q6H
     Dates: start: 20121024
  10. EUCERIN                            /00021201/ [Concomitant]
     Dosage: UNK UNK, QD
     Dates: start: 20120829
  11. CITRUCEL [Concomitant]
     Dosage: UNK UNK, QD
     Dates: start: 20120711
  12. VITAMIN D3 [Concomitant]
     Dosage: 2000 IU, QD
     Dates: start: 20120321
  13. MILK OF MAGNESIA [Concomitant]
     Dosage: 30 ML, QD
     Dates: start: 20120321
  14. TOPROL [Concomitant]
     Dosage: 50 MG, QD
     Dates: start: 20120101
  15. POTASSIUM CHLORIDE [Concomitant]
     Dosage: 8 MEQ, QD
     Dates: start: 20120101
  16. LASIX                              /00032601/ [Concomitant]
     Dosage: 20 MG, QD
     Dates: start: 20120101
  17. DETROL LA [Concomitant]
     Dosage: 4 MG, QD
     Dates: start: 20120101
  18. ASPIRIN E.C [Concomitant]
     Dosage: 81 MG, QD
     Dates: start: 20120101

REACTIONS (6)
  - Delirium [Unknown]
  - Cardiac failure congestive [Fatal]
  - Ischaemic cardiomyopathy [Fatal]
  - Arteriosclerosis [Fatal]
  - Hypertension [Unknown]
  - Chest discomfort [Unknown]
